FAERS Safety Report 7385730-4 (Version None)
Quarter: 2011Q1

REPORT INFORMATION
  Report Type: 
  Country: None (occurrence: None)
  Receive Date: 20110331
  Receipt Date: 20101006
  Transmission Date: 20110831
  Serious: Yes (Hospitalization, Other)
  Sender: FDA-Public Use
  Company Number: US-BAYER-201034901NA

PATIENT
  Sex: Female
  Weight: 99.773 kg

DRUGS (1)
  1. YASMIN [Suspect]
     Indication: POLYCYSTIC OVARIES
     Dosage: UNK UNK, QD
     Route: 048
     Dates: start: 20060101, end: 20080101

REACTIONS (4)
  - CHOLECYSTITIS [None]
  - INJURY [None]
  - BILIARY DYSKINESIA [None]
  - CHOLESTEROSIS [None]
